FAERS Safety Report 13456609 (Version 1)
Quarter: 2017Q2

REPORT INFORMATION
  Report Type: Spontaneous
  Country: US (occurrence: US)
  Receive Date: 20170418
  Receipt Date: 20170418
  Transmission Date: 20170830
  Serious: No
  Sender: FDA-Public Use
  Company Number: US-SEBELA IRELAND LIMITED-2016SEB00291

PATIENT
  Sex: Female
  Weight: 58.96 kg

DRUGS (6)
  1. IMURAN [Suspect]
     Active Substance: AZATHIOPRINE
     Dosage: UNK, 2X/DAY
     Route: 048
     Dates: start: 2013, end: 2013
  2. CENTRUM VITAMIN [Concomitant]
  3. PREDNISONE. [Concomitant]
     Active Substance: PREDNISONE
     Dosage: 5 MG, 1X/DAY
     Route: 048
  4. FISH OIL [Concomitant]
     Active Substance: FISH OIL
  5. IMURAN [Suspect]
     Active Substance: AZATHIOPRINE
     Indication: RHEUMATOID ARTHRITIS
     Dosage: UNK, 2X/DAY
     Route: 048
     Dates: start: 2013, end: 2013
  6. CALCIUM [Concomitant]
     Active Substance: CALCIUM

REACTIONS (4)
  - Dysphagia [Recovered/Resolved]
  - Drug hypersensitivity [Recovered/Resolved]
  - Abnormal sensation in eye [Recovered/Resolved]
  - Oropharyngeal pain [Recovered/Resolved]

NARRATIVE: CASE EVENT DATE: 2013
